FAERS Safety Report 7781392-2 (Version None)
Quarter: 2011Q3

REPORT INFORMATION
  Report Type: 
  Country: None (occurrence: None)
  Receive Date: 20110927
  Receipt Date: 20110920
  Transmission Date: 20111222
  Serious: Yes (Disabling, Other)
  Sender: FDA-Public Use
  Company Number: US-MERCK-1107USA02802

PATIENT
  Age: 60 Year
  Sex: Female

DRUGS (2)
  1. ACTONEL [Concomitant]
     Indication: OSTEOPOROSIS
     Route: 065
  2. FOSAMAX [Suspect]
     Indication: OSTEOPOROSIS
     Route: 048
     Dates: start: 19950101, end: 20020101

REACTIONS (14)
  - HEAD INJURY [None]
  - VITAMIN D DEFICIENCY [None]
  - LIMB ASYMMETRY [None]
  - BONE DISORDER [None]
  - TOOTH DISORDER [None]
  - EDENTULOUS [None]
  - CALCIUM DEFICIENCY [None]
  - BLOOD CHOLESTEROL INCREASED [None]
  - ADVERSE EVENT [None]
  - HYPERTENSION [None]
  - ORAL DISORDER [None]
  - FEMUR FRACTURE [None]
  - DEVICE EXTRUSION [None]
  - DENTAL CARIES [None]
